FAERS Safety Report 7786875-7 (Version None)
Quarter: 2011Q3

REPORT INFORMATION
  Report Type: 
  Country: None (occurrence: None)
  Receive Date: 20110928
  Receipt Date: 20110928
  Transmission Date: 20111222
  Serious: Yes (Death)
  Sender: FDA-Public Use
  Company Number: None

PATIENT
  Age: 48 Year
  Sex: Female

DRUGS (13)
  1. DILAUDID [Concomitant]
  2. ZOFRAN [Concomitant]
  3. DECADRON [Concomitant]
  4. PRILOSEC [Concomitant]
  5. ZYLOPRIM [Concomitant]
  6. EFFEXOR [Concomitant]
  7. LOVENOX [Concomitant]
  8. PROVERA [Concomitant]
  9. REVLIMID [Suspect]
     Indication: MULTIPLE MYELOMA
     Dosage: 10MG QD DAILY
     Dates: start: 20100501, end: 20100601
  10. REVLIMID [Suspect]
     Indication: MULTIPLE MYELOMA
     Dosage: 10MG QD DAILY
     Dates: start: 20100701, end: 20101101
  11. ZOVIRAX [Concomitant]
  12. DURAGESIC-100 [Concomitant]
  13. XANAX [Concomitant]

REACTIONS (5)
  - NEOPLASM PROGRESSION [None]
  - PLASMACYTOMA [None]
  - MULTIPLE MYELOMA [None]
  - BONE MARROW TRANSPLANT [None]
  - DRUG INEFFECTIVE [None]
